FAERS Safety Report 10062431 (Version 1)
Quarter: 2014Q2

REPORT INFORMATION
  Report Type: Spontaneous
  Country: ES (occurrence: ES)
  Receive Date: 20140407
  Receipt Date: 20140407
  Transmission Date: 20141212
  Serious: Yes (Hospitalization)
  Sender: FDA-Public Use
  Company Number: ES-MYLANLABS-2014S1007073

PATIENT
  Age: 52 Year
  Sex: Female

DRUGS (3)
  1. DRONEDARONE [Suspect]
     Indication: ATRIAL FIBRILLATION
     Dosage: 400MG/12 HR
     Route: 065
  2. TACROLIMUS [Interacting]
     Dosage: 10MG/24 HR
     Route: 065
  3. RIVAROXABAN [Concomitant]
     Indication: THROMBOSIS PROPHYLAXIS
     Dosage: 15MG/24 HR
     Route: 065

REACTIONS (2)
  - Drug interaction [Recovered/Resolved]
  - Renal impairment [Recovered/Resolved]
